FAERS Safety Report 25724656 (Version 1)
Quarter: 2025Q3

REPORT INFORMATION
  Report Type: Spontaneous
  Country: JP (occurrence: JP)
  Receive Date: 20250826
  Receipt Date: 20250826
  Transmission Date: 20251020
  Serious: Yes (Death, Hospitalization, Other)
  Sender: CHEPLAPHARM
  Company Number: JP-CHEPLA-2025010052

PATIENT
  Age: 86 Year
  Sex: Female

DRUGS (4)
  1. VALGANCICLOVIR [Suspect]
     Active Substance: VALGANCICLOVIR
     Indication: Cytomegalovirus infection
     Route: 048
  2. BENDAMUSTINE [Suspect]
     Active Substance: BENDAMUSTINE
     Indication: Rectal cancer
  3. RITUXIMAB [Suspect]
     Active Substance: RITUXIMAB
     Indication: Rectal cancer
  4. FLUCONAZOLE [Suspect]
     Active Substance: FLUCONAZOLE
     Indication: Antifungal prophylaxis
     Dosage: DAILY DOSE: 100 MILLIGRAM

REACTIONS (6)
  - Aspergillus infection [Fatal]
  - Brain abscess [Fatal]
  - Altered state of consciousness [Unknown]
  - Acute febrile neutrophilic dermatosis [Recovered/Resolved]
  - Myelodysplastic syndrome [Not Recovered/Not Resolved]
  - Off label use [Recovered/Resolved]
